FAERS Safety Report 19204402 (Version 1)
Quarter: 2021Q2

REPORT INFORMATION
  Report Type: Spontaneous
  Country: CN (occurrence: CN)
  Receive Date: 20210503
  Receipt Date: 20210503
  Transmission Date: 20210717
  Serious: Yes (Other)
  Sender: FDA-Public Use
  Company Number: CN-LUPIN PHARMACEUTICALS INC.-2021-06422

PATIENT
  Age: 0 Year
  Sex: Male

DRUGS (21)
  1. METHYLPREDNISOLONE. [Suspect]
     Active Substance: METHYLPREDNISOLONE
     Indication: THROMBOCYTOPENIA
     Dosage: 200 MILLIGRAM, QD
     Route: 064
     Dates: start: 202006
  2. RECOMBINANT HUMAN THROMBOPOIETIN [Suspect]
     Active Substance: THROMBOPOIETIN
     Dosage: 300 INTERNATIONAL UNIT/KILOGRAM, QD
     Route: 064
     Dates: start: 202003
  3. GAMMAGLOBULIN [Suspect]
     Active Substance: HUMAN IMMUNOGLOBULIN G
     Dosage: 400 MILLIGRAM/KILOGRAM, QD
     Route: 064
  4. ELTROMBOPAG [Suspect]
     Active Substance: ELTROMBOPAG
     Indication: THROMBOCYTOPENIA
     Dosage: 25 MILLIGRAM, QD
     Route: 064
     Dates: start: 20200702
  5. ELTROMBOPAG [Suspect]
     Active Substance: ELTROMBOPAG
     Dosage: 50 MILLIGRAM, QD?DOSE INCREASED
     Route: 064
     Dates: start: 2020
  6. PREDNISONE. [Suspect]
     Active Substance: PREDNISONE
     Dosage: 40 MILLIGRAM, QD
     Route: 064
     Dates: start: 202003
  7. METHANDROSTENOLONE [Suspect]
     Active Substance: METHANDROSTENOLONE
     Dosage: 40 MILLIGRAM, QD?SWITCHED TO REGULAR DOSES
     Route: 064
     Dates: start: 2020
  8. RECOMBINANT HUMAN THROMBOPOIETIN [Suspect]
     Active Substance: THROMBOPOIETIN
     Dosage: 300 INTERNATIONAL UNIT/KILOGRAM, QD
     Route: 064
     Dates: start: 202003
  9. METHYLPREDNISOLONE. [Suspect]
     Active Substance: METHYLPREDNISOLONE
     Dosage: 40 MILLIGRAM, QD
     Route: 064
     Dates: start: 2020
  10. RECOMBINANT HUMAN THROMBOPOIETIN [Suspect]
     Active Substance: THROMBOPOIETIN
     Indication: THROMBOCYTOPENIA
     Dosage: 300 INTERNATIONAL UNIT/KILOGRAM, QD (6 DOSAGE)
     Route: 064
     Dates: start: 202003
  11. CYCLOSPORINE. [Suspect]
     Active Substance: CYCLOSPORINE
     Indication: THROMBOCYTOPENIA
     Dosage: 75 MILLIGRAM, BID
     Route: 064
     Dates: start: 202006
  12. PREDNISONE. [Suspect]
     Active Substance: PREDNISONE
     Indication: THROMBOCYTOPENIA
     Dosage: 40 MILLIGRAM, QD
     Route: 064
     Dates: start: 202003
  13. PREDNISONE. [Suspect]
     Active Substance: PREDNISONE
     Dosage: 40 MILLIGRAM, QD
     Route: 064
     Dates: start: 202003
  14. GAMMAGLOBULIN [Suspect]
     Active Substance: HUMAN IMMUNOGLOBULIN G
     Dosage: 400 MILLIGRAM/KILOGRAM, QD
     Route: 064
  15. GAMMAGLOBULIN [Suspect]
     Active Substance: HUMAN IMMUNOGLOBULIN G
     Indication: THROMBOCYTOPENIA
     Dosage: 400 MILLIGRAM/KILOGRAM, QD
     Route: 064
  16. METHANDROSTENOLONE [Suspect]
     Active Substance: METHANDROSTENOLONE
     Indication: THROMBOCYTOPENIA
     Dosage: 40 MILLIGRAM, QD
     Route: 064
     Dates: start: 202006
  17. METHANDROSTENOLONE [Suspect]
     Active Substance: METHANDROSTENOLONE
     Dosage: 200 MILLIGRAM, QD?PULSE THERAPY
     Route: 064
     Dates: start: 20200622
  18. RECOMBINANT HUMAN THROMBOPOIETIN [Suspect]
     Active Substance: THROMBOPOIETIN
     Dosage: 300 INTERNATIONAL UNIT/KILOGRAM, QOD
     Route: 064
     Dates: start: 202003
  19. GAMMAGLOBULIN [Suspect]
     Active Substance: HUMAN IMMUNOGLOBULIN G
     Dosage: 400 MILLIGRAM/KILOGRAM, QD
     Route: 064
  20. HYDROXYCHLOROQUINE [Suspect]
     Active Substance: HYDROXYCHLOROQUINE
     Indication: THROMBOCYTOPENIA
     Dosage: 0.2 GRAM, BID
     Route: 064
     Dates: start: 2020
  21. DEXAMETHASONE. [Suspect]
     Active Substance: DEXAMETHASONE
     Indication: THROMBOCYTOPENIA
     Dosage: 10 MILLIGRAM, QD
     Route: 064
     Dates: start: 2020

REACTIONS (2)
  - Foetal exposure during pregnancy [Unknown]
  - Premature baby [Unknown]

NARRATIVE: CASE EVENT DATE: 2020
